FAERS Safety Report 8816597 (Version 1)
Quarter: 2012Q4

REPORT INFORMATION
  Report Type: Spontaneous
  Country: US (occurrence: None)
  Receive Date: 20120928
  Receipt Date: 20120928
  Transmission Date: 20130627
  Serious: Yes (Other)
  Sender: FDA-Public Use
  Company Number: TPA2012A06966

PATIENT
  Age: 57 Year
  Sex: Female

DRUGS (26)
  1. ADENURIC [Suspect]
     Route: 048
     Dates: start: 20120823
  2. ALFACALCIDOL [Concomitant]
  3. AMOXICILLIN [Concomitant]
  4. ASPIRIN (ACETYLSALICYLIC ACID) [Concomitant]
  5. BISOPROLOL [Concomitant]
  6. CALCEOS (COLECALCIFEROL, CALCIUM CARBONATE) [Concomitant]
  7. CANDESARTAN [Concomitant]
  8. CANESTAN (CLOTRIMAZOLE) [Concomitant]
  9. CARBOCISTEINE [Concomitant]
  10. E45 (WOOL FAT, PARAFFIN, LIQUID, WHITE SOFT PARAFFIN) [Concomitant]
  11. FERROUS SULPHATE (FERROUS SULFATE) [Concomitant]
  12. FOLIC ACID [Concomitant]
  13. FUROSEMIDE [Concomitant]
  14. FUSIDIC ACID [Concomitant]
  15. HYDRALAZINE [Concomitant]
  16. LANSOPRAZOLE [Concomitant]
  17. NICORANDIL [Concomitant]
  18. NOVOMIX (INSULIN ASPART, INSULIN ASPART PROTAMINE (CRYSTALLINE)) [Concomitant]
  19. PARACETAMOL [Concomitant]
  20. PIROXICAM [Concomitant]
  21. QUININE [Concomitant]
  22. SALBUTAMOL [Concomitant]
  23. SENNA (SENNA ALEXANDRINA) [Concomitant]
  24. SERETIDE (FLUTICASONE PROPIONATE, SALMETEROL XINAFOATE) [Concomitant]
  25. SIMVASTATIN [Concomitant]
  26. TRAMADOL [Concomitant]

REACTIONS (2)
  - Eye pruritus [None]
  - Rash erythematous [None]
